FAERS Safety Report 8409458-4 (Version None)
Quarter: 2012Q2

REPORT INFORMATION
  Report Type: 
  Country: None (occurrence: None)
  Receive Date: 20120605
  Receipt Date: 20120523
  Transmission Date: 20120825
  Serious: Yes (Hospitalization)
  Sender: FDA-Public Use
  Company Number: US-B.I. PHARMACEUTICALS,INC./RIDGEFIELD-2011-BP-03204BP

PATIENT
  Sex: Female
  Weight: 70.31 kg

DRUGS (3)
  1. MIRAPEX [Suspect]
     Indication: FIBROMYALGIA
     Dates: start: 20050101, end: 20080901
  2. MIRAPEX [Suspect]
     Indication: SYSTEMIC LUPUS ERYTHEMATOSUS
  3. MIRAPEX [Suspect]
     Indication: RESTLESS LEGS SYNDROME

REACTIONS (13)
  - DEPRESSION [None]
  - EMOTIONAL DISTRESS [None]
  - HYPOMANIA [None]
  - BIPOLAR I DISORDER [None]
  - JAW DISORDER [None]
  - OBSESSIVE-COMPULSIVE DISORDER [None]
  - MANIA [None]
  - ACUTE STRESS DISORDER [None]
  - CONVULSION [None]
  - TOOTH INFECTION [None]
  - COMPULSIVE SHOPPING [None]
  - SUICIDAL IDEATION [None]
  - PAIN [None]
